FAERS Safety Report 20599019 (Version 2)
Quarter: 2022Q2

REPORT INFORMATION
  Report Type: Spontaneous
  Country: JP (occurrence: JP)
  Receive Date: 20220315
  Receipt Date: 20220512
  Transmission Date: 20220720
  Serious: Yes (Death, Other)
  Sender: FDA-Public Use
  Company Number: JP-TAKEDA-2022TJP030211

PATIENT
  Age: 28 Year
  Sex: Female
  Weight: 47 kg

DRUGS (19)
  1. TRINTELLIX [Suspect]
     Active Substance: VORTIOXETINE HYDROBROMIDE
     Indication: Depression
     Dosage: 10 MILLIGRAM, QD
     Route: 048
     Dates: start: 20210605, end: 20211030
  2. TRINTELLIX [Suspect]
     Active Substance: VORTIOXETINE HYDROBROMIDE
     Indication: Cognitive disorder
     Dosage: 10 MILLIGRAM, BID
     Route: 048
     Dates: start: 20211113, end: 20220305
  3. ABILIFY [Concomitant]
     Active Substance: ARIPIPRAZOLE
     Indication: Depression
     Dosage: 1 MILLIGRAM, PRN
     Route: 048
     Dates: start: 20211113, end: 20211113
  4. REXULTI [Concomitant]
     Active Substance: BREXPIPRAZOLE
     Indication: Depression
     Dosage: 1 MILLIGRAM, QD
     Route: 048
     Dates: start: 20211116, end: 20211127
  5. REXULTI [Concomitant]
     Active Substance: BREXPIPRAZOLE
     Dosage: 1 MILLIGRAM, QD
     Route: 048
     Dates: start: 20211218, end: 20220129
  6. REXULTI [Concomitant]
     Active Substance: BREXPIPRAZOLE
     Dosage: 2 MILLIGRAM, QD
     Route: 048
     Dates: start: 20220203, end: 20220205
  7. REXULTI [Concomitant]
     Active Substance: BREXPIPRAZOLE
     Dosage: 1 MILLIGRAM, QOD
     Route: 048
     Dates: start: 20220212, end: 20220212
  8. HERBALS [Concomitant]
     Active Substance: HERBALS
     Indication: Fatigue
     Dosage: 2.5 MILLIGRAM, BID
     Route: 048
     Dates: start: 20210515, end: 20220305
  9. SULPIRIDE [Concomitant]
     Active Substance: SULPIRIDE
     Indication: Antiemetic supportive care
     Dosage: 50 MILLIGRAM, QD
     Route: 048
     Dates: start: 20210605, end: 20210807
  10. SULPIRIDE [Concomitant]
     Active Substance: SULPIRIDE
     Dosage: 50 MILLIGRAM, BID
     Route: 048
     Dates: start: 20211113, end: 20220108
  11. HERBALS [Concomitant]
     Active Substance: HERBALS
     Indication: Fatigue
     Dosage: 3.75 GRAM, QD
     Route: 048
     Dates: start: 20210612, end: 20210612
  12. ARIPIPRAZOLE [Concomitant]
     Active Substance: ARIPIPRAZOLE
     Indication: Depression
     Dosage: 3 MILLIGRAM, QD
     Route: 048
     Dates: start: 20210731, end: 20210807
  13. ARIPIPRAZOLE [Concomitant]
     Active Substance: ARIPIPRAZOLE
     Dosage: 3 MILLIGRAM, PRN
     Route: 048
     Dates: start: 20220203, end: 20220205
  14. CERCINE [Concomitant]
     Active Substance: DIAZEPAM
     Indication: Anxiety
     Dosage: 5 MILLIGRAM
     Route: 030
     Dates: start: 20211113, end: 20211113
  15. MIRTAZAPINE [Concomitant]
     Active Substance: MIRTAZAPINE
     Indication: Depression
     Dosage: 15 MILLIGRAM, QD
     Route: 048
     Dates: start: 20220203, end: 20220205
  16. DAYVIGO [Concomitant]
     Active Substance: LEMBOREXANT
     Indication: Insomnia
     Dosage: 5 MILLIGRAM, QD
     Route: 048
     Dates: start: 20211116, end: 20211116
  17. DAYVIGO [Concomitant]
     Active Substance: LEMBOREXANT
     Dosage: 2.5 MILLIGRAM, QD
     Route: 048
     Dates: start: 20211127, end: 20211127
  18. DAYVIGO [Concomitant]
     Active Substance: LEMBOREXANT
     Dosage: 5 MILLIGRAM, PRN
     Route: 048
     Dates: start: 20220115, end: 20220122
  19. ETIZOLAM [Concomitant]
     Active Substance: ETIZOLAM
     Indication: Anxiety
     Dosage: 5 MILLIGRAM, QD
     Route: 048
     Dates: start: 20211116, end: 20211116

REACTIONS (1)
  - Completed suicide [Fatal]

NARRATIVE: CASE EVENT DATE: 20220311
